FAERS Safety Report 13165696 (Version 1)
Quarter: 2017Q1

REPORT INFORMATION
  Report Type: Spontaneous
  Country: CA (occurrence: CA)
  Receive Date: 20170131
  Receipt Date: 20170131
  Transmission Date: 20170428
  Serious: Yes (Other)
  Sender: FDA-Public Use
  Company Number: CA-TEVA-734151ACC

PATIENT
  Age: 41 Year
  Sex: Male
  Weight: 80 kg

DRUGS (8)
  1. BLEOMYCIN SULPHATE FOR INJECTION USP [Concomitant]
  2. GRANISETRON [Concomitant]
     Active Substance: GRANISETRON
  3. CISPLATIN INJECTION [Concomitant]
     Active Substance: CISPLATIN
  4. DEXAMETHASONE. [Concomitant]
     Active Substance: DEXAMETHASONE
  5. PROCHLORPERAZINE. [Concomitant]
     Active Substance: PROCHLORPERAZINE
  6. DEXAMETHASONE SODIUM PHOSPHATE INJ USP 4 MG/ML [Concomitant]
  7. EMEND [Concomitant]
     Active Substance: APREPITANT
  8. ETOPOSIDE INJECTION [Suspect]
     Active Substance: ETOPOSIDE
     Indication: TESTIS CANCER
     Route: 042

REACTIONS (1)
  - Feeling hot [Recovered/Resolved]
